FAERS Safety Report 12209144 (Version 1)
Quarter: 2016Q1

REPORT INFORMATION
  Report Type: Report from Study
  Country: US (occurrence: US)
  Receive Date: 20160324
  Receipt Date: 20160324
  Transmission Date: 20160526
  Serious: Yes (Hospitalization, Other)
  Sender: FDA-Public Use
  Company Number: US-BIOGEN-2015BI104742

PATIENT
  Age: 38 Year
  Sex: Female

DRUGS (1)
  1. TYSABRI [Suspect]
     Active Substance: NATALIZUMAB
     Indication: MULTIPLE SCLEROSIS
     Route: 042
     Dates: start: 20130409, end: 20151208

REACTIONS (8)
  - Infection [Unknown]
  - Musculoskeletal stiffness [Recovered/Resolved]
  - Abasia [Not Recovered/Not Resolved]
  - Medical device change [Not Recovered/Not Resolved]
  - Surgery [Unknown]
  - Device dislocation [Not Recovered/Not Resolved]
  - Drug delivery device implantation [Not Recovered/Not Resolved]
  - Muscle tightness [Not Recovered/Not Resolved]

NARRATIVE: CASE EVENT DATE: 201508
